FAERS Safety Report 8556692-9 (Version None)
Quarter: 2012Q3

REPORT INFORMATION
  Report Type: 
  Country: None (occurrence: None)
  Receive Date: 20120801
  Receipt Date: 20120723
  Transmission Date: 20120928
  Serious: Yes (Other)
  Sender: FDA-Public Use
  Company Number: JP-ASTELLAS-2012JP006577

PATIENT
  Age: 20 Year
  Sex: Male

DRUGS (5)
  1. PROGRAF [Suspect]
     Dosage: UNK
     Route: 048
  2. PROGRAF [Suspect]
     Indication: PROPHYLAXIS AGAINST GRAFT VERSUS HOST DISEASE
     Dosage: UNK
     Route: 041
  3. FOSCAVIR [Concomitant]
     Indication: HUMAN HERPES VIRUS 6 SEROLOGY POSITIVE
     Route: 065
  4. CYCLOPHOSPHAMIDE [Concomitant]
     Route: 065
  5. TACROLIMUS [Suspect]
     Indication: PROPHYLAXIS AGAINST GRAFT VERSUS HOST DISEASE
     Route: 048

REACTIONS (6)
  - INAPPROPRIATE ANTIDIURETIC HORMONE SECRETION [None]
  - HUMAN HERPES VIRUS 6 SEROLOGY POSITIVE [None]
  - DRUG INEFFECTIVE [None]
  - ACUTE GRAFT VERSUS HOST DISEASE [None]
  - ACUTE GRAFT VERSUS HOST DISEASE IN SKIN [None]
  - ACUTE GRAFT VERSUS HOST DISEASE IN INTESTINE [None]
